FAERS Safety Report 11772975 (Version 1)
Quarter: 2015Q4

REPORT INFORMATION
  Report Type: Spontaneous
  Country: US (occurrence: US)
  Receive Date: 20151124
  Receipt Date: 20151124
  Transmission Date: 20160304
  Serious: No
  Sender: FDA-Public Use
  Company Number: US-PFIZER INC-2015391949

PATIENT
  Age: 51 Year
  Sex: Female

DRUGS (1)
  1. IBRANCE [Suspect]
     Active Substance: PALBOCICLIB
     Indication: HAEMATOLOGICAL MALIGNANCY
     Dosage: 100 MG, 1X/DAY (X 3 WEEKS)
     Dates: start: 20150922

REACTIONS (4)
  - Platelet count decreased [Unknown]
  - Product use issue [Unknown]
  - Haematological malignancy [Unknown]
  - Disease progression [Unknown]
